FAERS Safety Report 5897554-5 (Version None)
Quarter: 2008Q3

REPORT INFORMATION
  Report Type: 
  Country: None (occurrence: None)
  Receive Date: 20080925
  Receipt Date: 20080923
  Transmission Date: 20090109
  Serious: Yes (Other)
  Sender: FDA-Public Use
  Company Number: US-BAYER-200813249NA

PATIENT
  Age: 72 Year
  Sex: Male
  Weight: 45 kg

DRUGS (10)
  1. SORAFENIB [Suspect]
     Indication: NON-SMALL CELL LUNG CANCER
     Dosage: TOTAL DAILY DOSE: 800 MG  UNIT DOSE: 200 MG
     Route: 048
  2. SORAFENIB OR PLACEBO [Suspect]
     Indication: NON-SMALL CELL LUNG CANCER
     Dosage: TOTAL DAILY DOSE: 800 MG  UNIT DOSE: 200 MG
     Route: 048
     Dates: start: 20070313, end: 20070328
  3. ALBUTEROL SULFATE [Concomitant]
  4. AVODART [Concomitant]
  5. ASPIRIN [Concomitant]
     Dates: start: 20070313
  6. ISOSORBIDE [Concomitant]
  7. MULTI-VITAMIN [Concomitant]
  8. OXYGEN [Concomitant]
  9. PREDNISONE [Concomitant]
  10. ZOCOR [Concomitant]

REACTIONS (8)
  - BLOOD ALKALINE PHOSPHATASE INCREASED [None]
  - BLOOD GLUCOSE INCREASED [None]
  - BRONCHOSTENOSIS [None]
  - DRUG TOXICITY [None]
  - HAEMOPTYSIS [None]
  - MALIGNANT NEOPLASM PROGRESSION [None]
  - PALMAR-PLANTAR ERYTHRODYSAESTHESIA SYNDROME [None]
  - PERIPHERAL MOTOR NEUROPATHY [None]
